FAERS Safety Report 6458773-2 (Version None)
Quarter: 2009Q4

REPORT INFORMATION
  Report Type: 
  Country: None (occurrence: None)
  Receive Date: 20091127
  Receipt Date: 20091118
  Transmission Date: 20100525
  Serious: Yes (Life-Threatening, Hospitalization)
  Sender: FDA-Public Use
  Company Number: FR-ROCHE-670073

PATIENT
  Sex: Male

DRUGS (4)
  1. XELODA [Suspect]
     Indication: DRUG USE FOR UNKNOWN INDICATION
     Route: 048
     Dates: start: 20090715, end: 20090728
  2. FLUOROURACIL [Suspect]
     Indication: DRUG USE FOR UNKNOWN INDICATION
     Dosage: DRUG NAME: FLUOROURACIL MYLAN; FORMULATION: INFUSION; FREQUENCY: ONCE
     Route: 042
     Dates: start: 20090728, end: 20090729
  3. OXALIPLATIN [Concomitant]
     Dosage: PATIENT RECEIVED 1ST CYCLE ON 02 JUN 09, 2ND ON 16 JUN 2009, 3RD ON 30 JUN 2009, 4TH ON 15 JUL 09
     Dates: start: 20090602
  4. INNOHEP [Concomitant]

REACTIONS (12)
  - ABDOMINAL PAIN [None]
  - BONE MARROW FAILURE [None]
  - DIARRHOEA [None]
  - DYSPEPSIA [None]
  - LACTIC ACIDOSIS [None]
  - METABOLIC ACIDOSIS [None]
  - MUCOSAL INFLAMMATION [None]
  - ORTHOSTATIC HYPOTENSION [None]
  - PYREXIA [None]
  - RENAL FAILURE [None]
  - THROMBOSIS IN DEVICE [None]
  - VOMITING [None]
